FAERS Safety Report 9434283 (Version 1)
Quarter: 2013Q3

REPORT INFORMATION
  Report Type: Report from Study
  Country: MX (occurrence: MX)
  Receive Date: 20130801
  Receipt Date: 20130801
  Transmission Date: 20140515
  Serious: Yes (Death, Hospitalization)
  Sender: FDA-Public Use
  Company Number: PHHY2012MX117804

PATIENT
  Age: 88 Year
  Sex: Male

DRUGS (2)
  1. EXELON PATCH [Suspect]
     Indication: DEMENTIA ALZHEIMER^S TYPE
     Dosage: 4.6 MG, DAILY  (5CM2 PATCH, DAILY)
     Route: 062
     Dates: start: 201209, end: 2012
  2. NIMODIPINO [Concomitant]
     Dosage: 1 DF, DAILY

REACTIONS (7)
  - Hypophagia [Fatal]
  - Mobility decreased [Fatal]
  - Pneumonia [Fatal]
  - Eating disorder [Recovered/Resolved]
  - Hypersomnia [Recovered/Resolved]
  - Malnutrition [Unknown]
  - Depression [Unknown]
